FAERS Safety Report 6567463-7 (Version None)
Quarter: 2010Q1

REPORT INFORMATION
  Report Type: 
  Country: None (occurrence: None)
  Receive Date: 20100202
  Receipt Date: 20100127
  Transmission Date: 20100710
  Serious: Yes (Death)
  Sender: FDA-Public Use
  Company Number: CH-BAYER-201013641GPV

PATIENT
  Age: 77 Year
  Sex: Female

DRUGS (14)
  1. ASPIRIN [Suspect]
     Indication: TEMPORAL ARTERITIS
     Dosage: TOTAL DAILY DOSE: 100 MG  UNIT DOSE: 100 MG
     Route: 048
     Dates: start: 20090624, end: 20090812
  2. ESOMEPRAZOLE [Suspect]
     Indication: DRUG USE FOR UNKNOWN INDICATION
     Dosage: TOTAL DAILY DOSE: 40 MG  UNIT DOSE: 40 MG
     Route: 048
     Dates: start: 20090624, end: 20090812
  3. COTRIM [Suspect]
     Indication: DRUG USE FOR UNKNOWN INDICATION
     Route: 048
     Dates: start: 20090807, end: 20090816
  4. METAMIZOLE [Suspect]
     Indication: DRUG USE FOR UNKNOWN INDICATION
     Route: 048
     Dates: start: 20090814, end: 20090817
  5. FLUCONAZOLE [Suspect]
     Indication: CANDIDIASIS
     Dosage: TOTAL DAILY DOSE: 200 MG  UNIT DOSE: 200 MG
     Route: 048
     Dates: start: 20090812, end: 20090812
  6. AMPHOTERICIN B [Concomitant]
     Indication: CANDIDIASIS
     Route: 048
     Dates: start: 20090807, end: 20090815
  7. FELODIPINE [Concomitant]
     Dates: start: 20010101, end: 20090817
  8. CHLORTALIDON/OXPRENOLOL [Concomitant]
     Dates: start: 20030101, end: 20090817
  9. LISINOPRIL [Concomitant]
     Route: 048
  10. PREDNISONE [Concomitant]
     Route: 048
     Dates: start: 20090812, end: 20090817
  11. COLECALCIFEROL/CALCIUM [Concomitant]
     Route: 048
     Dates: start: 20090624, end: 20090812
  12. DALTEPARIN [Concomitant]
     Route: 058
     Dates: start: 20090807, end: 20090818
  13. VALACYCLOVIR HCL [Concomitant]
     Route: 048
     Dates: start: 20090807, end: 20090817
  14. RANITIDINE [Concomitant]
     Route: 048
     Dates: start: 20090814, end: 20090818

REACTIONS (3)
  - CIRCULATORY COLLAPSE [None]
  - HYPOVOLAEMIC SHOCK [None]
  - TOXIC EPIDERMAL NECROLYSIS [None]
